FAERS Safety Report 9796769 (Version 1)
Quarter: 2014Q1

REPORT INFORMATION
  Report Type: Spontaneous
  Country: FR (occurrence: FR)
  Receive Date: 20140103
  Receipt Date: 20140103
  Transmission Date: 20141002
  Serious: Yes (Hospitalization)
  Sender: FDA-Public Use
  Company Number: FR-WATSON-2013-24386

PATIENT
  Age: 62 Year
  Sex: Male
  Weight: 90 kg

DRUGS (4)
  1. SOTALOL [Suspect]
     Indication: PRODUCT USED FOR UNKNOWN INDICATION
     Dosage: UNK, UNKNOWN
     Route: 048
     Dates: start: 201302, end: 20130701
  2. PRADAXA [Suspect]
     Indication: PRODUCT USED FOR UNKNOWN INDICATION
     Dosage: 110 MG, DAILY
     Route: 048
     Dates: start: 201302, end: 20130704
  3. GARDENAL                           /00023201/ [Concomitant]
     Indication: PRODUCT USED FOR UNKNOWN INDICATION
     Dosage: 100 MG
     Route: 065
  4. ZYLORIC [Concomitant]
     Indication: PRODUCT USED FOR UNKNOWN INDICATION
     Dosage: 300
     Route: 065

REACTIONS (2)
  - Purpura [Recovered/Resolved]
  - Rash morbilliform [Recovered/Resolved]
